FAERS Safety Report 24993295 (Version 1)
Quarter: 2025Q1

REPORT INFORMATION
  Report Type: Spontaneous
  Country: JP (occurrence: JP)
  Receive Date: 20250221
  Receipt Date: 20250221
  Transmission Date: 20250408
  Serious: Yes (Hospitalization, Other)
  Sender: Steriscience PTE
  Company Number: JP-STERISCIENCE B.V.-2025-ST-000263

PATIENT
  Age: 32 Year
  Sex: Female

DRUGS (15)
  1. BUPIVACAINE [Suspect]
     Active Substance: BUPIVACAINE
     Indication: Spinal anaesthesia
     Route: 065
  2. ONDANSETRON [Suspect]
     Active Substance: ONDANSETRON
     Indication: Nausea
     Route: 065
  3. ONDANSETRON [Suspect]
     Active Substance: ONDANSETRON
     Indication: Headache
  4. RITODRINE [Suspect]
     Active Substance: RITODRINE
     Indication: Uterine contractions abnormal
     Route: 065
  5. FENTANYL [Suspect]
     Active Substance: FENTANYL
     Indication: Spinal anaesthesia
     Route: 065
  6. FENTANYL [Suspect]
     Active Substance: FENTANYL
     Indication: Nausea
     Route: 065
  7. FENTANYL [Suspect]
     Active Substance: FENTANYL
     Indication: Headache
  8. DEXAMETHASONE [Suspect]
     Active Substance: DEXAMETHASONE
     Indication: Nausea
     Route: 065
  9. DEXAMETHASONE [Suspect]
     Active Substance: DEXAMETHASONE
     Indication: Headache
  10. ACETAMINOPHEN [Suspect]
     Active Substance: ACETAMINOPHEN
     Indication: Nausea
     Route: 065
  11. ACETAMINOPHEN [Suspect]
     Active Substance: ACETAMINOPHEN
     Indication: Headache
  12. METOCLOPRAMIDE [Suspect]
     Active Substance: METOCLOPRAMIDE
     Indication: Nausea
     Route: 065
  13. METOCLOPRAMIDE [Suspect]
     Active Substance: METOCLOPRAMIDE
     Indication: Headache
  14. DROPERIDOL [Suspect]
     Active Substance: DROPERIDOL
     Indication: Nausea
     Route: 065
  15. DROPERIDOL [Suspect]
     Active Substance: DROPERIDOL
     Indication: Headache

REACTIONS (3)
  - Extradural haematoma [Unknown]
  - Maternal exposure during delivery [Unknown]
  - Off label use [Unknown]
